FAERS Safety Report 6241141-6 (Version None)
Quarter: 2009Q2

REPORT INFORMATION
  Report Type: 
  Country: None (occurrence: None)
  Receive Date: 20090619
  Receipt Date: 20090619
  Transmission Date: 20091009
  Serious: Yes (Other)
  Sender: FDA-Public Use
  Company Number: None

PATIENT
  Age: 58 Year
  Sex: Female
  Weight: 60.3284 kg

DRUGS (2)
  1. ZICAM NOT ON PRODUCT-HAVE THE ON BOTTOM: A30715/EXP. 06/06 [Suspect]
     Indication: NASOPHARYNGITIS
     Dosage: ONCE NOV. 1ST, 2003 ONE SPRAY ONCE NOV. 2ND, 2003 ONE SPRAY
     Dates: start: 20031101, end: 20031102
  2. . [Concomitant]

REACTIONS (4)
  - AGEUSIA [None]
  - ANOSMIA [None]
  - FRUSTRATION [None]
  - SOCIAL AVOIDANT BEHAVIOUR [None]
